FAERS Safety Report 11282276 (Version 2)
Quarter: 2015Q3

REPORT INFORMATION
  Report Type: Report from Study
  Country: US (occurrence: US)
  Receive Date: 20150720
  Receipt Date: 20150721
  Transmission Date: 20151125
  Serious: No
  Sender: FDA-Public Use
  Company Number: US-ASTRAZENECA-2015SE67162

PATIENT
  Sex: Male

DRUGS (1)
  1. SEROQUEL XR [Suspect]
     Active Substance: QUETIAPINE FUMARATE
     Route: 048

REACTIONS (7)
  - Abnormal dreams [Unknown]
  - Confusional state [Unknown]
  - Apathy [Unknown]
  - Dizziness [Unknown]
  - Irritability [Unknown]
  - Nervousness [Unknown]
  - Anxiety [Unknown]
